FAERS Safety Report 8065594 (Version 2)
Quarter: 2012Q4

REPORT INFORMATION
  Report Type: 
  Country: NL (occurrence: NL)
  Receive Date: 20110802
  Receipt Date: 20120914
  Transmission Date: 20130627
  Serious: Yes (Death, Hospitalization, Other)
  Sender: FDA-Public Use
  Company Number: PHHY2011NL67052

PATIENT
  Age: 83 Year
  Sex: Male

DRUGS (5)
  1. ZOMETA [Suspect]
     Indication: PROSTATE CANCER
     Dosage: 4 mg/5mlonce per 42 days
     Dates: start: 20081127
  2. ZOMETA [Suspect]
     Dosage: 4 mg/5mlonce per 42 days
     Dates: start: 20110510
  3. ZOMETA [Suspect]
     Dosage: 4 mg/5mlonce per 42 days
     Dates: start: 20110620
  4. ZOMETA [Suspect]
     Dosage: 4 mg/100ml once per 42 days
     Dates: start: 20120531
  5. ZOMETA [Suspect]
     Dosage: 4 mg/100ml once per 42 days
     Dates: start: 20120723

REACTIONS (3)
  - Pneumonia [Fatal]
  - Malaise [Fatal]
  - Chronic obstructive pulmonary disease [Unknown]
